FAERS Safety Report 4816909-0 (Version None)
Quarter: 2005Q4

REPORT INFORMATION
  Report Type: 
  Country: None (occurrence: None)
  Receive Date: 20051101
  Receipt Date: 20050722
  Transmission Date: 20060501
  Serious: Yes (Hospitalization)
  Sender: FDA-Public Use
  Company Number: US-MERCK-0507USA03757

PATIENT
  Age: 66 Year
  Sex: Male
  Weight: 80 kg

DRUGS (37)
  1. VIOXX [Suspect]
     Indication: ARTHRALGIA
     Route: 048
     Dates: start: 20000903, end: 20040930
  2. NAPROXEN [Concomitant]
     Indication: ARTHRITIS
     Route: 065
     Dates: start: 20001101, end: 20020101
  3. ASPIRIN [Concomitant]
     Indication: ARTHRITIS
     Route: 065
     Dates: start: 19990805
  4. FOLIC ACID [Concomitant]
     Indication: MEDICAL DIET
     Route: 065
  5. LORTAB [Concomitant]
     Indication: ANALGESIC EFFECT
     Route: 065
  6. VITAMINS (UNSPECIFIED) [Concomitant]
     Indication: MEDICAL DIET
     Route: 065
  7. PLAVIX [Concomitant]
     Indication: PROPHYLAXIS
     Route: 065
  8. PREDNISONE [Concomitant]
     Indication: ARTHRITIS
     Route: 065
     Dates: start: 20030401, end: 20030501
  9. PSEUDOEPHEDRINE [Concomitant]
     Indication: SINUS DISORDER
     Route: 065
  10. RANITIDINE HYDROCHLORIDE [Concomitant]
     Route: 065
  11. PYRIDOXINE [Concomitant]
     Route: 065
  12. VITAMIN E [Concomitant]
     Route: 065
  13. CELEBREX [Concomitant]
     Route: 065
     Dates: start: 20000101
  14. CELEBREX [Concomitant]
     Route: 065
     Dates: start: 20000825
  15. ATENOLOL [Concomitant]
     Indication: HYPERTENSION
     Route: 065
  16. ATENOLOL [Concomitant]
     Indication: ANGINA PECTORIS
     Route: 065
  17. AVAPRO [Concomitant]
     Indication: HYPERTENSION
     Route: 065
     Dates: start: 20030818
  18. CAPTOPRIL MSD [Concomitant]
     Indication: HYPERTENSION
     Route: 065
  19. CEPHALEXIN [Concomitant]
     Indication: COUGH
     Route: 065
     Dates: start: 20020201
  20. CEPHALEXIN [Concomitant]
     Route: 065
     Dates: start: 20020201
  21. DONNATAL [Concomitant]
     Indication: IRRITABLE BOWEL SYNDROME
     Route: 065
     Dates: start: 20021001
  22. FEXOFENADINE HYDROCHLORIDE [Concomitant]
     Indication: SINUS DISORDER
     Route: 065
  23. HYDROCHLOROTHIAZIDE [Concomitant]
     Indication: HYPERTENSION
     Route: 065
  24. LAMISIL [Concomitant]
     Indication: FUNGAL INFECTION
     Route: 065
     Dates: start: 20020501
  25. LOMOTIL [Concomitant]
     Indication: IRRITABLE BOWEL SYNDROME
     Route: 065
     Dates: start: 20021001
  26. METHOCARBAMOL [Concomitant]
     Indication: MYALGIA
     Route: 065
  27. METHYLPREDNISOLONE [Concomitant]
     Indication: ASTHMA
     Route: 065
     Dates: start: 20010701
  28. METOPROLOL-BC [Concomitant]
     Indication: HYPERTENSION
     Route: 065
     Dates: start: 20021028
  29. NICOVEL (NIACIN) [Concomitant]
     Indication: BLOOD CHOLESTEROL INCREASED
     Route: 065
  30. NICOVEL (NIACIN) [Concomitant]
     Route: 065
     Dates: start: 20021028
  31. NITROGLYCERIN [Concomitant]
     Indication: ANGINA PECTORIS
     Route: 065
  32. SEPTRA [Concomitant]
     Indication: INFECTION
     Route: 065
  33. AZITHROMYCIN [Concomitant]
     Indication: EAR PAIN
     Route: 065
  34. ZOCOR [Concomitant]
     Indication: BLOOD CHOLESTEROL INCREASED
     Route: 065
     Dates: start: 19991110
  35. TERAZOSIN HYDROCHLORIDE [Concomitant]
     Indication: HYPERTENSION
     Route: 065
  36. VERAPAMIL MSD LP [Concomitant]
     Indication: HYPERTENSION
     Route: 065
  37. REXAN (ACYCLOVIR) [Concomitant]
     Route: 065

REACTIONS (27)
  - ANGIOPATHY [None]
  - ARTERIOSCLEROSIS [None]
  - ASTHMA [None]
  - BLOOD GLUCOSE ABNORMAL [None]
  - CATARACT [None]
  - CHEST PAIN [None]
  - CORONARY ARTERY DISEASE [None]
  - COUGH [None]
  - DIARRHOEA [None]
  - DIVERTICULITIS [None]
  - EAR PAIN [None]
  - FUNGAL INFECTION [None]
  - HERPES ZOSTER [None]
  - HIGH DENSITY LIPOPROTEIN DECREASED [None]
  - HYPERSENSITIVITY [None]
  - HYPERTENSION [None]
  - ILIAC ARTERY STENOSIS [None]
  - INFECTION [None]
  - IRRITABLE BOWEL SYNDROME [None]
  - LEUKOPENIA [None]
  - MYOCARDIAL INFARCTION [None]
  - NERVE COMPRESSION [None]
  - NORMOCHROMIC NORMOCYTIC ANAEMIA [None]
  - POST HERPETIC NEURALGIA [None]
  - RHINITIS [None]
  - SINUSITIS [None]
  - WEIGHT INCREASED [None]
